FAERS Safety Report 7674394-8 (Version None)
Quarter: 2011Q3

REPORT INFORMATION
  Report Type: 
  Country: None (occurrence: None)
  Receive Date: 20110810
  Receipt Date: 20110804
  Transmission Date: 20111222
  Serious: Yes (Disabling)
  Sender: FDA-Public Use
  Company Number: DK-SANOFI-AVENTIS-2011SA049237

PATIENT
  Sex: Female

DRUGS (5)
  1. TAXOTERE [Suspect]
     Indication: BREAST CANCER
     Route: 041
     Dates: start: 20090928, end: 20090928
  2. CYCLOPHOSPHAMIDE [Concomitant]
     Indication: BREAST CANCER
     Route: 065
     Dates: start: 20090928
  3. EPIRUBICIN [Suspect]
     Route: 065
     Dates: start: 20091101
  4. EPIRUBICIN [Suspect]
     Indication: BREAST CANCER
     Route: 065
     Dates: start: 20091019
  5. CYCLOPHOSPHAMIDE [Concomitant]
     Route: 065
     Dates: start: 20091101

REACTIONS (18)
  - NERVE INJURY [None]
  - FATIGUE [None]
  - PAIN [None]
  - BURNING SENSATION [None]
  - LOCAL ANAESTHESIA [None]
  - PERIPHERAL MOTOR NEUROPATHY [None]
  - ORAL FUNGAL INFECTION [None]
  - DIARRHOEA [None]
  - COORDINATION ABNORMAL [None]
  - PARALYSIS [None]
  - WALKING DISABILITY [None]
  - MYALGIA [None]
  - ARTHRALGIA [None]
  - CONDITION AGGRAVATED [None]
  - ASTHENIA [None]
  - BACK PAIN [None]
  - SENSORY DISTURBANCE [None]
  - NAUSEA [None]
